FAERS Safety Report 8844615 (Version 1)
Quarter: 2012Q4

REPORT INFORMATION
  Report Type: Spontaneous
  Country: US (occurrence: None)
  Receive Date: 20121016
  Receipt Date: 20121016
  Transmission Date: 20130627
  Serious: Yes (Hospitalization)
  Sender: FDA-Public Use
  Company Number: None

PATIENT
  Sex: Male
  Weight: 115.9 kg

DRUGS (15)
  1. COUMADIN [Suspect]
     Indication: CHRONIC ATRIAL FIBRILLATION
     Dosage: CHRONIC
     Route: 048
  2. ASA [Suspect]
     Indication: CORONARY ARTERY DISEASE
     Dosage: CHRONIC
     Route: 048
  3. ALEVE [Suspect]
     Indication: LOW BACK PAIN
     Dosage: CHRONIC
     Route: 048
  4. GABAPENTIN [Concomitant]
  5. CLORAZEPATE [Concomitant]
  6. METHCARBAMOL [Concomitant]
  7. PREVACID [Concomitant]
  8. ISOSORBIDE MONO [Concomitant]
  9. LOSARTAN [Concomitant]
  10. ATORVASTATIN [Concomitant]
  11. TRAMADOL [Concomitant]
  12. LASIX [Concomitant]
  13. COREG [Concomitant]
  14. TUSSIONEX [Concomitant]
  15. ALDACTONE [Concomitant]

REACTIONS (3)
  - Gastrointestinal haemorrhage [None]
  - International normalised ratio increased [None]
  - Cardiac disorder [None]
